FAERS Safety Report 22048369 (Version 1)
Quarter: 2023Q1

REPORT INFORMATION
  Report Type: Spontaneous
  Country: US (occurrence: US)
  Receive Date: 20230301
  Receipt Date: 20230301
  Transmission Date: 20230417
  Serious: Yes (Hospitalization, Other)
  Sender: FDA-Public Use
  Company Number: None

PATIENT
  Age: 54 Year
  Sex: Female

DRUGS (5)
  1. PREDNISONE [Suspect]
     Active Substance: PREDNISONE
     Indication: Immunosuppression
     Dosage: LOW DOSE
  2. HYDROXYCHLOROQUINE [Concomitant]
     Active Substance: HYDROXYCHLOROQUINE
     Indication: Immunosuppression
  3. INSULIN GLARGINE [Concomitant]
     Active Substance: INSULIN GLARGINE
     Indication: Immunosuppression
  4. FUROSEMIDE [Concomitant]
     Active Substance: FUROSEMIDE
     Indication: Immunosuppression
  5. NIFEDIPINE [Concomitant]
     Active Substance: NIFEDIPINE
     Indication: Immunosuppression

REACTIONS (2)
  - Tubulointerstitial nephritis [Recovered/Resolved]
  - Candida infection [Recovered/Resolved]
